FAERS Safety Report 8286476-0 (Version None)
Quarter: 2012Q2

REPORT INFORMATION
  Report Type: 
  Country: None (occurrence: None)
  Receive Date: 20120416
  Receipt Date: 20120410
  Transmission Date: 20120825
  Serious: Yes (Other)
  Sender: FDA-Public Use
  Company Number: US-PFIZER INC-2012084288

PATIENT
  Sex: Female

DRUGS (1)
  1. REVATIO [Suspect]
     Dosage: 20 MG, 3X/DAY
     Dates: start: 20110831

REACTIONS (4)
  - GASTRIC BANDING REVERSAL [None]
  - MALAISE [None]
  - SINUSITIS [None]
  - STAPHYLOCOCCAL INFECTION [None]
